FAERS Safety Report 5782023-3 (Version None)
Quarter: 2008Q2

REPORT INFORMATION
  Report Type: 
  Country: None (occurrence: None)
  Receive Date: 20080623
  Receipt Date: 20080612
  Transmission Date: 20081010
  Serious: Yes (Life-Threatening)
  Sender: FDA-Public Use
  Company Number: JP-MERCK-0804USA01785

PATIENT
  Age: 68 Year
  Sex: Male

DRUGS (3)
  1. PEPCID RPD [Suspect]
     Route: 048
  2. [THERAPY UNSPECIFIED] [Concomitant]
     Route: 065
  3. MINOMYCIN [Suspect]
     Route: 065

REACTIONS (1)
  - RENAL FAILURE ACUTE [None]
